FAERS Safety Report 4768726-8 (Version None)
Quarter: 2005Q3

REPORT INFORMATION
  Report Type: 
  Country: None (occurrence: None)
  Receive Date: 20050914
  Receipt Date: 20050912
  Transmission Date: 20060218
  Serious: Yes (Other)
  Sender: FDA-Public Use
  Company Number: US-GLAXOSMITHKLINE-A0573888A

PATIENT
  Age: 63 Year
  Sex: Female

DRUGS (6)
  1. ZOFRAN [Suspect]
     Indication: HYPONATRAEMIA
     Dosage: 4MG THREE TIMES PER DAY
     Route: 042
     Dates: start: 20050908
  2. METOPROLOL [Concomitant]
  3. LISINOPRIL [Concomitant]
  4. BENADRYL [Concomitant]
  5. CLONIDINE [Concomitant]
  6. HYDROCHLOROTHIAZIDE [Concomitant]

REACTIONS (2)
  - NEUTROPENIA [None]
  - WHITE BLOOD CELL COUNT DECREASED [None]
